FAERS Safety Report 4508849-1 (Version None)
Quarter: 2004Q4

REPORT INFORMATION
  Report Type: 
  Country: None (occurrence: None)
  Receive Date: 20041123
  Receipt Date: 20040924
  Transmission Date: 20050328
  Serious: No
  Sender: FDA-Public Use
  Company Number: US-GLAXOSMITHKLINE-A0527323A

PATIENT
  Age: 56 Year
  Sex: Male

DRUGS (2)
  1. WELLBUTRIN SR [Suspect]
     Indication: DEPRESSION
     Dosage: 150MG TWICE PER DAY
     Route: 048
     Dates: start: 20040501
  2. NICORETTE [Concomitant]

REACTIONS (6)
  - ANGER [None]
  - ANXIETY [None]
  - CONFUSIONAL STATE [None]
  - EUPHORIC MOOD [None]
  - IRRITABILITY [None]
  - PARANOIA [None]
